FAERS Safety Report 8062574-1 (Version None)
Quarter: 2012Q1

REPORT INFORMATION
  Report Type: 
  Country: None (occurrence: None)
  Receive Date: 20120118
  Receipt Date: 20120109
  Transmission Date: 20120608
  Serious: Yes (Other)
  Sender: FDA-Public Use
  Company Number: 1000026862

PATIENT
  Age: 57 Year
  Sex: Female

DRUGS (2)
  1. VIIBRYD [Suspect]
     Indication: DEPRESSION
     Dosage: 10 MG (10 MG,1 IN 1 D), ORAL
     Route: 048
     Dates: start: 20111201, end: 20111201
  2. DEPAKOTE [Concomitant]

REACTIONS (4)
  - CONDITION AGGRAVATED [None]
  - SUICIDAL IDEATION [None]
  - DEPRESSION [None]
  - AGITATION [None]
